FAERS Safety Report 21768882 (Version 2)
Quarter: 2023Q1

REPORT INFORMATION
  Report Type: Report from Study
  Country: US (occurrence: US)
  Receive Date: 20221222
  Receipt Date: 20230131
  Transmission Date: 20230418
  Serious: No
  Sender: FDA-Public Use
  Company Number: US-ABBVIE-4199053

PATIENT
  Sex: Female

DRUGS (2)
  1. RINVOQ [Suspect]
     Active Substance: UPADACITINIB
     Indication: Psoriasis
     Dosage: FIRST ADMIN DATE 2022
     Route: 048
  2. RINVOQ [Suspect]
     Active Substance: UPADACITINIB
     Indication: Psoriasis
     Dosage: THE ONSET OF THE EVENTS OF  BODY ACHES,BODY ACNE,HEADACHE,INSOMNIA,NAUSEA,STOMACH ACHE/STOMACH CR...
     Route: 048
     Dates: start: 20220915, end: 20221121

REACTIONS (7)
  - Pain [Recovering/Resolving]
  - Nausea [Recovering/Resolving]
  - Joint swelling [Unknown]
  - Headache [Recovering/Resolving]
  - Abdominal pain upper [Recovering/Resolving]
  - Psoriasis [Recovering/Resolving]
  - Acne [Recovering/Resolving]
